FAERS Safety Report 5911727-4 (Version None)
Quarter: 2008Q4

REPORT INFORMATION
  Report Type: 
  Country: None (occurrence: None)
  Receive Date: 20081008
  Receipt Date: 20081001
  Transmission Date: 20090506
  Serious: Yes (Other)
  Sender: FDA-Public Use
  Company Number: GB-RANBAXY-2008RR-18443

PATIENT
  Age: 50 Year
  Sex: Male

DRUGS (11)
  1. FLUOXETINE [Suspect]
     Dosage: 40 MG, UNK
     Route: 065
  2. DIHYDROCODEINE BITARTRATE INJ [Suspect]
     Route: 065
  3. OXYCONTIN [Suspect]
     Indication: PAIN
     Dosage: UNK MG, BID
     Route: 065
     Dates: start: 20061201
  4. OXYNORM [Suspect]
     Indication: PAIN
     Dosage: UNK
     Route: 065
     Dates: start: 20061201
  5. CALCICHEW [Concomitant]
     Route: 065
  6. ETORICOXIB [Concomitant]
     Route: 065
  7. IBANDRONIC ACID [Concomitant]
     Route: 065
  8. ISPHAGULA [Concomitant]
     Route: 065
  9. OMEPRAZOLE [Concomitant]
     Route: 065
  10. PREDNISOLONE [Concomitant]
     Route: 065
  11. SENNA [Concomitant]
     Route: 065

REACTIONS (5)
  - CONSTIPATION [None]
  - DRUG DEPENDENCE [None]
  - DRUG INEFFECTIVE [None]
  - DRUG INTERACTION [None]
  - HYPERHIDROSIS [None]
